FAERS Safety Report 10335179 (Version 1)
Quarter: 2014Q3

REPORT INFORMATION
  Report Type: Spontaneous
  Country: US (occurrence: None)
  Receive Date: 20140722
  Receipt Date: 20140722
  Transmission Date: 20150326
  Serious: Yes (Disabling)
  Sender: FDA-Public Use
  Company Number: None

PATIENT
  Age: 31 Year
  Sex: Male
  Weight: 74.84 kg

DRUGS (1)
  1. CIPROFLOXACIN. [Suspect]
     Active Substance: CIPROFLOXACIN
     Indication: PROSTATITIS
     Dosage: 20 TWICE DAILY TAKEN BY MOUTH
     Route: 048
     Dates: start: 20140710, end: 20140716

REACTIONS (7)
  - Muscle tightness [None]
  - Myalgia [None]
  - Joint stiffness [None]
  - Arthropathy [None]
  - Tendon disorder [None]
  - Arthralgia [None]
  - Chondropathy [None]

NARRATIVE: CASE EVENT DATE: 20140721
